FAERS Safety Report 4342482-X (Version None)
Quarter: 2004Q2

REPORT INFORMATION
  Report Type: 
  Country: None (occurrence: None)
  Receive Date: 20040416
  Receipt Date: 20040405
  Transmission Date: 20050107
  Serious: Yes (Life-Threatening, Hospitalization)
  Sender: FDA-Public Use
  Company Number: 04P-044-0256062-00

PATIENT
  Age: 45 Year
  Sex: Female

DRUGS (4)
  1. ABBOTICIN GRANULE (ERYPED) (ERYTHROMYCIN ETHYLSUCCINATE) [Suspect]
     Indication: PNEUMONIA
     Dosage: 200 MG, 3 IN 1 D, PER ORAL
     Route: 048
     Dates: start: 20040328, end: 20040328
  2. ASANTIN R [Concomitant]
  3. MAGNYL [Concomitant]
  4. LAMOTRIGINE [Concomitant]

REACTIONS (5)
  - ABDOMINAL PAIN [None]
  - CARDIAC ARREST [None]
  - CIRCULATORY COLLAPSE [None]
  - SYNCOPE [None]
  - VOMITING [None]
